FAERS Safety Report 23028231 (Version 1)
Quarter: 2023Q4

REPORT INFORMATION
  Report Type: Spontaneous
  Country: TH (occurrence: TH)
  Receive Date: 20231004
  Receipt Date: 20231004
  Transmission Date: 20240110
  Serious: Yes (Other)
  Sender: FDA-Public Use
  Company Number: TH-002147023-NVSC2023TH207120

PATIENT
  Age: 48 Year
  Sex: Female

DRUGS (12)
  1. RIBOCICLIB [Suspect]
     Active Substance: RIBOCICLIB
     Indication: Invasive breast carcinoma
     Dosage: UNK
     Route: 065
     Dates: start: 20201123
  2. RIBOCICLIB [Suspect]
     Active Substance: RIBOCICLIB
     Indication: Metastases to liver
     Dosage: UNK
     Route: 065
     Dates: start: 20210301, end: 20230913
  3. LETROZOLE [Suspect]
     Active Substance: LETROZOLE
     Indication: Breast cancer
     Dosage: UNK
     Route: 065
     Dates: start: 20210301, end: 20230913
  4. LETROZOLE [Suspect]
     Active Substance: LETROZOLE
     Indication: Metastases to liver
  5. ENANTONE LP [Concomitant]
     Active Substance: LEUPROLIDE ACETATE
     Indication: Invasive breast carcinoma
     Dosage: UNK, QMO
     Route: 065
     Dates: start: 20201123
  6. ENANTONE LP [Concomitant]
     Active Substance: LEUPROLIDE ACETATE
     Indication: Metastases to liver
  7. TAMOXIFEN [Concomitant]
     Active Substance: TAMOXIFEN
     Indication: Breast cancer
     Dosage: UNK
     Route: 065
     Dates: start: 20201123
  8. TAMOXIFEN [Concomitant]
     Active Substance: TAMOXIFEN
     Indication: Metastases to liver
  9. TIPIRACIL HYDROCHLORIDE\TRIFLURIDINE [Concomitant]
     Active Substance: TIPIRACIL HYDROCHLORIDE\TRIFLURIDINE
     Indication: Breast cancer
     Dosage: UNK
     Route: 065
     Dates: start: 20210129
  10. TIPIRACIL HYDROCHLORIDE\TRIFLURIDINE [Concomitant]
     Active Substance: TIPIRACIL HYDROCHLORIDE\TRIFLURIDINE
     Indication: Metastases to liver
  11. BUTHIONINE SULFOXIMINE [Concomitant]
     Active Substance: BUTHIONINE SULFOXIMINE
     Indication: Breast cancer
     Dosage: UNK
     Route: 065
     Dates: start: 20210129
  12. BUTHIONINE SULFOXIMINE [Concomitant]
     Active Substance: BUTHIONINE SULFOXIMINE
     Indication: Metastases to liver

REACTIONS (1)
  - Electrocardiogram QT prolonged [Recovered/Resolved]
